FAERS Safety Report 5177345-3 (Version None)
Quarter: 2006Q4

REPORT INFORMATION
  Report Type: 
  Country: None (occurrence: None)
  Receive Date: 20061218
  Receipt Date: 20061205
  Transmission Date: 20070319
  Serious: Yes (Hospitalization)
  Sender: FDA-Public Use
  Company Number: NL-JNJFOC-20061100664

PATIENT
  Sex: Female
  Weight: 54.9 kg

DRUGS (6)
  1. INFLIXIMAB [Suspect]
     Indication: CROHN'S DISEASE
     Route: 042
  2. IMURAN [Concomitant]
     Indication: CROHN'S DISEASE
     Route: 065
  3. BUDESONIDE [Concomitant]
     Indication: CROHN'S DISEASE
     Route: 065
  4. ETHINYL ESTRADIOL TAB [Concomitant]
     Indication: CONTRACEPTION
     Route: 065
  5. LEVONORGESTREL [Concomitant]
     Indication: CONTRACEPTION
     Route: 065
  6. OMEPRAZOLE [Concomitant]
     Indication: DYSPEPSIA
     Route: 065

REACTIONS (1)
  - APPENDICITIS [None]
